FAERS Safety Report 5875100-X (Version None)
Quarter: 2008Q3

REPORT INFORMATION
  Report Type: 
  Country: None (occurrence: None)
  Receive Date: 20080909
  Receipt Date: 20080903
  Transmission Date: 20090109
  Serious: Yes (Other)
  Sender: FDA-Public Use
  Company Number: A0745697A

PATIENT
  Age: 67 Year
  Sex: Female

DRUGS (8)
  1. ADVAIR DISKUS 100/50 [Suspect]
     Indication: ASTHMA
     Route: 055
  2. ATACAND [Concomitant]
  3. MAXZIDE [Concomitant]
  4. LIPITOR [Concomitant]
  5. ELAVIL [Concomitant]
  6. TRANXENE [Concomitant]
  7. RESTASIS [Concomitant]
  8. PROVENTIL [Concomitant]

REACTIONS (5)
  - ASTHMA [None]
  - BRONCHITIS [None]
  - DRY THROAT [None]
  - PHARMACEUTICAL PRODUCT COMPLAINT [None]
  - THROAT IRRITATION [None]
